FAERS Safety Report 21253127 (Version 1)
Quarter: 2022Q3

REPORT INFORMATION
  Report Type: Spontaneous
  Country: US (occurrence: None)
  Receive Date: 20220824
  Receipt Date: 20220824
  Transmission Date: 20221027
  Serious: Yes (Disabling, Other)
  Sender: FDA-Public Use
  Company Number: None

PATIENT
  Age: 80 Year
  Sex: Female
  Weight: 57.61 kg

DRUGS (1)
  1. ATEZOLIZUMAB [Suspect]
     Active Substance: ATEZOLIZUMAB
     Dates: start: 20220516, end: 20220628

REACTIONS (7)
  - Musculoskeletal stiffness [None]
  - Chest pain [None]
  - Cough [None]
  - Spinal compression fracture [None]
  - Pneumonitis [None]
  - Muscle disorder [None]
  - Nervous system disorder [None]

NARRATIVE: CASE EVENT DATE: 20220619
